FAERS Safety Report 9780702 (Version 1)
Quarter: 2013Q4

REPORT INFORMATION
  Report Type: Spontaneous
  Country: AT (occurrence: AT)
  Receive Date: 20131224
  Receipt Date: 20131224
  Transmission Date: 20140711
  Serious: Yes (Other)
  Sender: FDA-Public Use
  Company Number: AT-JNJFOC-20131211548

PATIENT
  Age: 29 Year
  Sex: Female

DRUGS (1)
  1. INFLIXIMAB, RECOMBINANT [Suspect]
     Indication: INTESTINAL TRANSPLANT
     Route: 042

REACTIONS (3)
  - Cytomegalovirus enteritis [Unknown]
  - Bronchopulmonary aspergillosis [Unknown]
  - Drug ineffective for unapproved indication [Unknown]
